FAERS Safety Report 25677489 (Version 1)
Quarter: 2025Q3

REPORT INFORMATION
  Report Type: Spontaneous
  Country: CN (occurrence: CN)
  Receive Date: 20250813
  Receipt Date: 20250813
  Transmission Date: 20251021
  Serious: Yes (Hospitalization, Other)
  Sender: BRACCO
  Company Number: CN-BRACCO-2025CN05469

PATIENT
  Age: 59 Year
  Sex: Female

DRUGS (4)
  1. IOMERON [Suspect]
     Active Substance: IOMEPROL
     Indication: Angiogram pulmonary
     Route: 042
     Dates: start: 20250801, end: 20250801
  2. AMBROXOL [Concomitant]
     Active Substance: AMBROXOL
     Indication: Pneumonia aspiration
     Dosage: 30 MG, BID, PUMP INJECTION
     Dates: start: 20250731, end: 20250804
  3. AMINOPHYLLINE [Concomitant]
     Active Substance: AMINOPHYLLINE
     Indication: Pneumonia aspiration
     Dosage: 0.25 G, QD, PUMP INJECTION
     Dates: start: 20250731, end: 20250804
  4. LEVOFLOXACIN [Concomitant]
     Active Substance: LEVOFLOXACIN
     Indication: Pneumonia aspiration
     Dosage: 0.5 G, QD, PUMP INJECTION
     Dates: start: 20250801, end: 20250803

REACTIONS (6)
  - Rash [Recovering/Resolving]
  - Pruritus [Recovering/Resolving]
  - Chest discomfort [Recovering/Resolving]
  - Dyspnoea [Recovering/Resolving]
  - Oedema peripheral [Recovering/Resolving]
  - Purpura [Recovering/Resolving]

NARRATIVE: CASE EVENT DATE: 20250802
